FAERS Safety Report 19981435 (Version 1)
Quarter: 2021Q4

REPORT INFORMATION
  Report Type: Report from Study
  Country: DE (occurrence: DE)
  Receive Date: 20211022
  Receipt Date: 20211022
  Transmission Date: 20220303
  Serious: Yes (Other)
  Sender: FDA-Public Use
  Company Number: DE-BRISTOL-MYERS SQUIBB COMPANY-BMS-2021-109898

PATIENT
  Age: 75 Year
  Sex: Male

DRUGS (9)
  1. NIVOLUMAB [Suspect]
     Active Substance: NIVOLUMAB
     Indication: Renal cell carcinoma
     Dosage: 3 MILLIGRAM/KILOGRAM BODY WEIGHT, Q3WK
     Route: 042
     Dates: start: 20210624, end: 20210826
  2. IPILIMUMAB [Suspect]
     Active Substance: IPILIMUMAB
     Indication: Renal cell carcinoma
     Dosage: 1 MILLIGRAM/KILOGRAM, BODY WEIGHT Q3WK
     Route: 042
     Dates: start: 20210624, end: 20210826
  3. METAMIZOLE [Concomitant]
     Active Substance: METAMIZOLE
     Indication: Neoplasm
     Dosage: 500 MILLIGRAM, PRN
     Route: 065
     Dates: start: 20210610
  4. MOXONIDINE [Concomitant]
     Active Substance: MOXONIDINE
     Indication: Cardiovascular disorder
     Dosage: 0,2 MG TWICE A DAY
     Route: 065
  5. MOXONIDINE [Concomitant]
     Active Substance: MOXONIDINE
     Indication: Cerebrovascular disorder
  6. BETAXOLOL [Concomitant]
     Active Substance: BETAXOLOL
     Indication: Cardiovascular disorder
     Dosage: 10 MILLIGRAM
     Route: 065
  7. BETAXOLOL [Concomitant]
     Active Substance: BETAXOLOL
     Indication: Cerebrovascular disorder
  8. CANDESARTAN CILEXETIL\HYDROCHLOROTHIAZIDE [Concomitant]
     Active Substance: CANDESARTAN CILEXETIL\HYDROCHLOROTHIAZIDE
     Indication: Cardiovascular disorder
     Dosage: 32/12,5 MG
     Route: 065
  9. CANDESARTAN CILEXETIL\HYDROCHLOROTHIAZIDE [Concomitant]
     Active Substance: CANDESARTAN CILEXETIL\HYDROCHLOROTHIAZIDE
     Indication: Cerebrovascular disorder

REACTIONS (1)
  - Pulmonary embolism [Not Recovered/Not Resolved]

NARRATIVE: CASE EVENT DATE: 20210929
